FAERS Safety Report 6519256-4 (Version None)
Quarter: 2009Q4

REPORT INFORMATION
  Report Type: 
  Country: None (occurrence: None)
  Receive Date: 20091228
  Receipt Date: 20091217
  Transmission Date: 20100525
  Serious: Yes (Life-Threatening, Hospitalization)
  Sender: FDA-Public Use
  Company Number: RO-JNJFOC-20091205404

PATIENT
  Sex: Male

DRUGS (3)
  1. REMICADE [Suspect]
     Indication: PSORIASIS
     Route: 042
  2. NEUROLEPTIC DRUGS NOS [Concomitant]
  3. SEDATIVE [Concomitant]

REACTIONS (2)
  - ANXIETY [None]
  - DEPRESSION [None]
